FAERS Safety Report 4643392-0 (Version None)
Quarter: 2005Q2

REPORT INFORMATION
  Report Type: 
  Country: None (occurrence: None)
  Receive Date: 20050422
  Receipt Date: 20050408
  Transmission Date: 20051028
  Serious: Yes (Death, Hospitalization, Other)
  Sender: FDA-Public Use
  Company Number: 2004043537

PATIENT
  Age: 60 Year
  Sex: Male

DRUGS (11)
  1. NEURONTIN [Suspect]
     Indication: NEUROPATHY PERIPHERAL
     Dosage: 600 MG (300 MG, 2 IN 1 D), ORAL
     Route: 048
     Dates: start: 19960930
  2. NEURONTIN [Suspect]
     Indication: RESTLESS LEGS SYNDROME
     Dosage: 600 MG (300 MG, 2 IN 1 D), ORAL
     Route: 048
     Dates: start: 19960930
  3. MIDAZOLAM HCL [Suspect]
     Indication: ILL-DEFINED DISORDER
     Dosage: INTRAVENOUS
     Route: 042
     Dates: start: 20020618, end: 20020618
  4. TRAMADOL HCL [Suspect]
     Indication: PAIN
     Dosage: ORAL
     Route: 048
  5. CITALOPRAM (CITALOPRAM) [Suspect]
     Indication: ILL-DEFINED DISORDER
     Dates: start: 20000101
  6. PANCURONIUM [Suspect]
     Indication: ILL-DEFINED DISORDER
     Dosage: INTRAVENOUS
     Route: 042
     Dates: start: 20020618, end: 20020618
  7. ALL OTHER THERAPEUTIC PRODUCTS (ALL OTHER THERAPEUTIC PRODUCTS) [Suspect]
     Indication: ILL-DEFINED DISORDER
  8. ZOLIPIDEM TARTRATE (ZOLPIDEM TARTRATE) [Concomitant]
  9. IBUPROFEN [Concomitant]
  10. CLONAZEPAM [Concomitant]
  11. MIRTAZAPINE [Concomitant]

REACTIONS (14)
  - ANXIETY [None]
  - COGNITIVE DISORDER [None]
  - COMPLETED SUICIDE [None]
  - DEPRESSED LEVEL OF CONSCIOUSNESS [None]
  - DEPRESSION [None]
  - FATIGUE [None]
  - INTENTIONAL MISUSE [None]
  - LIBIDO DECREASED [None]
  - MAJOR DEPRESSION [None]
  - RESPIRATORY DISTRESS [None]
  - SLEEP DISORDER [None]
  - SLUGGISHNESS [None]
  - SOMNOLENCE [None]
  - SUICIDAL IDEATION [None]
